FAERS Safety Report 9924302 (Version 1)
Quarter: 2014Q1

REPORT INFORMATION
  Report Type: Spontaneous
  Country: US (occurrence: US)
  Receive Date: 20140226
  Receipt Date: 20140226
  Transmission Date: 20141002
  Serious: Yes (Other)
  Sender: FDA-Public Use
  Company Number: US-AMGEN-USASP2014012743

PATIENT
  Age: 35 Year
  Sex: Male

DRUGS (2)
  1. ENBREL [Suspect]
     Indication: PSORIATIC ARTHROPATHY
     Dosage: 50 MG, QWK
     Route: 065
     Dates: start: 2013, end: 201311
  2. ENBREL [Suspect]
     Indication: PSORIASIS

REACTIONS (7)
  - Psoriatic arthropathy [Not Recovered/Not Resolved]
  - Lower respiratory tract infection [Recovered/Resolved]
  - Decreased immune responsiveness [Recovered/Resolved]
  - Excoriation [Recovered/Resolved]
  - Impaired healing [Recovered/Resolved]
  - Sinus disorder [Recovered/Resolved]
  - Psoriasis [Not Recovered/Not Resolved]
